FAERS Safety Report 8474161-1 (Version None)
Quarter: 2012Q2

REPORT INFORMATION
  Report Type: 
  Country: None (occurrence: None)
  Receive Date: 20120628
  Receipt Date: 20120620
  Transmission Date: 20120825
  Serious: No
  Sender: FDA-Public Use
  Company Number: US-PFIZER INC-2012149138

PATIENT
  Sex: Male
  Weight: 81.633 kg

DRUGS (19)
  1. CELEXA [Concomitant]
     Indication: BIPOLAR DISORDER
  2. VISTARIL [Concomitant]
     Indication: ANXIETY
  3. VISTARIL [Concomitant]
     Indication: AFFECTIVE DISORDER
  4. XANAX [Suspect]
     Indication: STRESS
     Dosage: 2 MG, 2X/DAY
     Route: 048
     Dates: end: 20120101
  5. SEROQUEL [Concomitant]
     Indication: ANXIETY
  6. SEROQUEL [Concomitant]
     Indication: SCHIZOPHRENIA
  7. VISTARIL [Concomitant]
     Indication: BIPOLAR DISORDER
  8. ALPRAZOLAM [Suspect]
     Indication: ANXIETY
  9. CELEXA [Concomitant]
     Indication: STRESS
     Dosage: 40 MG, 2X/DAY
  10. CELEXA [Concomitant]
     Indication: AFFECTIVE DISORDER
  11. XANAX [Suspect]
     Indication: ANXIETY
  12. SEROQUEL [Concomitant]
     Indication: AFFECTIVE DISORDER
  13. CELEXA [Concomitant]
     Indication: SCHIZOPHRENIA
  14. ALPRAZOLAM [Suspect]
     Indication: STRESS
     Dosage: 1 MG, 3X/DAY
     Route: 048
     Dates: start: 20120301
  15. SEROQUEL [Concomitant]
     Indication: STRESS
     Dosage: 200 MG, 2X/DAY
  16. SEROQUEL [Concomitant]
     Indication: BIPOLAR DISORDER
  17. VISTARIL [Concomitant]
     Indication: STRESS
     Dosage: 50 MG, 2X/DAY
  18. VISTARIL [Concomitant]
     Indication: SCHIZOPHRENIA
  19. CELEXA [Concomitant]
     Indication: ANXIETY

REACTIONS (4)
  - FATIGUE [None]
  - SOMNOLENCE [None]
  - FEELING ABNORMAL [None]
  - DRUG INEFFECTIVE [None]
